FAERS Safety Report 9467443 (Version 3)
Quarter: 2013Q3

REPORT INFORMATION
  Report Type: Report from Study
  Country: US (occurrence: US)
  Receive Date: 20130821
  Receipt Date: 20130906
  Transmission Date: 20140515
  Serious: Yes (Hospitalization, Other)
  Sender: FDA-Public Use
  Company Number: PHHY2013US083473

PATIENT
  Age: 53 Year
  Sex: Female

DRUGS (7)
  1. GILENYA [Suspect]
     Indication: MULTIPLE SCLEROSIS
     Dosage: 0.5 MG, QD
     Route: 048
     Dates: start: 201112
  2. BACLOFEN [Concomitant]
  3. MAXALT [Concomitant]
  4. TOPAMAX [Concomitant]
  5. TIZANIDINE [Concomitant]
  6. CELEXA [Concomitant]
  7. EFFEXOR [Concomitant]

REACTIONS (6)
  - Joint injury [Unknown]
  - Blood glucose increased [Unknown]
  - Multiple sclerosis relapse [Recovered/Resolved]
  - Convulsion [Recovered/Resolved]
  - Fall [Unknown]
  - Hallucination [Unknown]
